FAERS Safety Report 26207275 (Version 1)
Quarter: 2025Q4

REPORT INFORMATION
  Report Type: Spontaneous
  Country: GB (occurrence: GB)
  Receive Date: 20251229
  Receipt Date: 20251229
  Transmission Date: 20260118
  Serious: Yes (Other)
  Sender: ORGANON
  Company Number: None

PATIENT
  Age: 60 Year
  Sex: Male
  Weight: 84 kg

DRUGS (15)
  1. MIRTAZAPINE [Suspect]
     Active Substance: MIRTAZAPINE
     Dosage: 15 MILLIGRAM, QD
     Dates: start: 20251212
  2. EPIPEN [Concomitant]
     Active Substance: EPINEPHRINE
     Dosage: USE AS DIRECTED
  3. PREDNISOLONE [Concomitant]
     Active Substance: PREDNISOLONE
     Dosage: TAKE SIX TABLETS ONCE DAILY FOR 5 DAYS FOR URTI...
     Dates: start: 20251104, end: 20251109
  4. ADAPT [Concomitant]
     Dosage: USE AS DIRECTED
  5. FLUOXETINE [Concomitant]
     Active Substance: FLUOXETINE HYDROCHLORIDE
     Indication: Affective disorder
     Dosage: TAKE ONE DAILY TO IMPROVE MOOD
     Dates: start: 20251212
  6. BISOPROLOL [Concomitant]
     Active Substance: BISOPROLOL
     Dosage: TAKE ONE DAILY
     Dates: start: 20220920
  7. HYDROXYCHLOROQUINE SULFATE [Concomitant]
     Active Substance: HYDROXYCHLOROQUINE SULFATE
     Dosage: TAKE ONE TABLET A DAY AS DIRECTED BY CLINIC
     Dates: start: 20220920
  8. MEBEVERINE HYDROCHLORIDE [Concomitant]
     Active Substance: MEBEVERINE HYDROCHLORIDE
     Dosage: 1 CAPSULE TWICE A DAY
     Dates: start: 20220920
  9. OMEPRAZOLE [Concomitant]
     Active Substance: OMEPRAZOLE
     Dosage: TAKE ONE DAILY
     Dates: start: 20221004
  10. TAMSULOSIN HYDROCHLORIDE [Concomitant]
     Active Substance: TAMSULOSIN HYDROCHLORIDE
     Dosage: TAKE ONE DAILY
     Dates: start: 20230208
  11. DAPAGLIFLOZIN [Concomitant]
     Active Substance: DAPAGLIFLOZIN
     Dosage: TAKE ONE DAILY FROM DISCHARGE
     Dates: start: 20230704
  12. RAMIPRIL [Concomitant]
     Active Substance: RAMIPRIL
     Dosage: TAKE ONE DAILY
     Dates: start: 20230704
  13. SPIRONOLACTONE [Concomitant]
     Active Substance: SPIRONOLACTONE
     Dosage: TAKE HALF A TABLET DAILY
     Dates: start: 20230704
  14. ATORVASTATIN [Concomitant]
     Active Substance: ATORVASTATIN
     Dosage: TAKE ONE AT NIGHT ( HIGH INTENSITY STATIN)
     Dates: start: 20230718
  15. ASPIRIN [Concomitant]
     Active Substance: ASPIRIN
     Dosage: TAKE ONE DAILY
     Dates: start: 20230725

REACTIONS (3)
  - Swelling face [Recovered/Resolved]
  - Lip swelling [Recovered/Resolved]
  - Pruritus [Recovered/Resolved]

NARRATIVE: CASE EVENT DATE: 20251216
